FAERS Safety Report 20657385 (Version 1)
Quarter: 2022Q1

REPORT INFORMATION
  Report Type: Spontaneous
  Country: FR (occurrence: FR)
  Receive Date: 20220331
  Receipt Date: 20220331
  Transmission Date: 20220423
  Serious: Yes (Other)
  Sender: FDA-Public Use
  Company Number: None

PATIENT
  Age: 100 Year
  Sex: Female

DRUGS (1)
  1. CLOZAPINE [Suspect]
     Active Substance: CLOZAPINE
     Dosage: 1 TAB 100 MG + 1 TAB 25 MG
     Route: 048
     Dates: start: 20211031

REACTIONS (5)
  - Oxygen therapy [Recovered/Resolved]
  - Product dispensing error [Recovered/Resolved]
  - Somnolence [Recovered/Resolved]
  - Wrong patient received product [Recovered/Resolved]
  - Stress at work [Recovered/Resolved]

NARRATIVE: CASE EVENT DATE: 20211031
